FAERS Safety Report 7992266-6 (Version None)
Quarter: 2011Q4

REPORT INFORMATION
  Report Type: 
  Country: None (occurrence: None)
  Receive Date: 20111219
  Receipt Date: 20110714
  Transmission Date: 20120403
  Serious: No
  Sender: FDA-Public Use
  Company Number: US-ASTRAZENECA-2011SE42327

PATIENT
  Age: 74 Year
  Sex: Male

DRUGS (3)
  1. CRESTOR [Suspect]
     Route: 048
     Dates: end: 20110518
  2. NEXIUM [Concomitant]
  3. LEXAPRO [Concomitant]

REACTIONS (5)
  - HYPOTONIA [None]
  - MUSCULAR WEAKNESS [None]
  - RASH GENERALISED [None]
  - MUSCLE ATROPHY [None]
  - MYALGIA [None]
